FAERS Safety Report 7903223-X (Version None)
Quarter: 2011Q4

REPORT INFORMATION
  Report Type: 
  Country: None (occurrence: None)
  Receive Date: 20111109
  Receipt Date: 20111101
  Transmission Date: 20120403
  Serious: Yes (Life-Threatening)
  Sender: FDA-Public Use
  Company Number: US-COVIDIEN/TYCO HEALTHCARE/MALLINCKRODT-T201102309

PATIENT
  Age: 65 Year
  Sex: Female

DRUGS (4)
  1. SODIUM CHLORIDE [Concomitant]
     Dosage: UNK
     Dates: start: 20111101, end: 20111101
  2. TECHNETIUM TC 99M SESTAMIBI [Suspect]
     Indication: CARDIAC STRESS TEST
     Dosage: UNK
     Dates: start: 20111101, end: 20111101
  3. ULTRA-TECHNEKOW [Suspect]
     Indication: CARDIAC STRESS TEST
     Dosage: 37.5 MCI, SINGLE (STRESS)
     Dates: start: 20111101, end: 20111101
  4. ULTRA-TECHNEKOW [Suspect]
     Dosage: 11.2 MCI, SINGLE (REST)
     Dates: start: 20111101, end: 20111101

REACTIONS (1)
  - ANAPHYLACTIC SHOCK [None]
